FAERS Safety Report 22034646 (Version 2)
Quarter: 2023Q2

REPORT INFORMATION
  Report Type: Spontaneous
  Country: US (occurrence: US)
  Receive Date: 20230224
  Receipt Date: 20230503
  Transmission Date: 20230722
  Serious: No
  Sender: FDA-Public Use
  Company Number: US-PFIZER INC-202300079929

PATIENT
  Age: 52 Year
  Sex: Female
  Weight: 77.11 kg

DRUGS (2)
  1. PAXLOVID [Suspect]
     Active Substance: NIRMATRELVIR\RITONAVIR
     Indication: COVID-19 treatment
     Dosage: [PF-07321332 300 MG]/[RITONAVIR 100 MG]; 2X/DAY
     Dates: start: 20230215, end: 20230220
  2. VENLAFAXINE HYDROCHLORIDE [Concomitant]
     Active Substance: VENLAFAXINE HYDROCHLORIDE
     Dosage: 75 MG, 2X/DAY
     Dates: start: 2011

REACTIONS (10)
  - Diarrhoea [Recovered/Resolved]
  - Gastric disorder [Recovered/Resolved]
  - Abdominal discomfort [Recovered/Resolved]
  - Feeding disorder [Recovered/Resolved]
  - Anosmia [Recovering/Resolving]
  - Ageusia [Recovering/Resolving]
  - Cognitive disorder [Unknown]
  - Pollakiuria [Unknown]
  - Dry mouth [Unknown]
  - Salivary gland disorder [Unknown]

NARRATIVE: CASE EVENT DATE: 20230215
